FAERS Safety Report 9870810 (Version 1)
Quarter: 2014Q1

REPORT INFORMATION
  Report Type: Spontaneous
  Country: GB (occurrence: GB)
  Receive Date: 20140205
  Receipt Date: 20140205
  Transmission Date: 20141002
  Serious: Yes (Other)
  Sender: FDA-Public Use
  Company Number: GB-ACTAVIS-2014-01301

PATIENT
  Age: 70 Year
  Sex: Male
  Weight: 75 kg

DRUGS (10)
  1. CO-AMOXICLAV [Suspect]
     Indication: DIVERTICULITIS
     Dosage: 625 MG, UNKNOWN
     Route: 048
     Dates: start: 20130830, end: 20130907
  2. CLOPIDOGREL (UNKNOWN) [Suspect]
     Indication: CARDIOVASCULAR EVENT PROPHYLAXIS
     Dosage: 75 MG, UNKNOWN
     Route: 048
     Dates: start: 20130920, end: 20131108
  3. ATORVASTATIN [Concomitant]
     Indication: CARDIOVASCULAR EVENT PROPHYLAXIS
     Dosage: 20 MG, UNKNOWN
     Route: 048
     Dates: start: 20100319, end: 20131125
  4. BISOPROLOL [Concomitant]
     Indication: CARDIOVASCULAR EVENT PROPHYLAXIS
     Dosage: 2.5 MG, UNKNOWN
     Route: 048
     Dates: start: 20111116, end: 20131125
  5. ASPIRIN [Concomitant]
     Indication: CARDIOVASCULAR EVENT PROPHYLAXIS
     Dosage: 75 MG, UNKNOWN
     Route: 048
     Dates: start: 20080704
  6. LANSOPRAZOLE [Concomitant]
     Indication: HIATUS HERNIA
     Dosage: 30 MG, UNKNOWN
     Route: 048
     Dates: start: 20111114
  7. PERINDOPRIL [Concomitant]
     Indication: CARDIOVASCULAR EVENT PROPHYLAXIS
     Dosage: 2 MG, UNKNOWN
     Route: 048
     Dates: start: 20080903
  8. TAMSULOSIN [Concomitant]
     Indication: BENIGN PROSTATIC HYPERPLASIA
     Dosage: 400 MICROGRAMS, UNKNOWN
     Route: 048
     Dates: start: 20051107
  9. ISOSORBIDE MONONITRATE [Concomitant]
     Indication: CARDIOVASCULAR EVENT PROPHYLAXIS
     Dosage: 25 MG, UNKNOWN; MR
     Route: 048
     Dates: start: 20130920
  10. FINASTERIDE [Concomitant]
     Indication: BENIGN PROSTATIC HYPERPLASIA
     Dosage: 5 MG, UNKNOWN
     Route: 048
     Dates: start: 20091029

REACTIONS (1)
  - Transaminases increased [Recovered/Resolved]
